FAERS Safety Report 19258688 (Version 1)
Quarter: 2021Q2

REPORT INFORMATION
  Report Type: Spontaneous
  Country: FR (occurrence: FR)
  Receive Date: 20210514
  Receipt Date: 20210514
  Transmission Date: 20210717
  Serious: Yes (Hospitalization, Disabling)
  Sender: FDA-Public Use
  Company Number: FR-MYLANLABS-2021M1028119

PATIENT
  Age: 31 Year
  Sex: Female

DRUGS (3)
  1. BROMAZEPAM [Concomitant]
     Active Substance: BROMAZEPAM
     Indication: PRODUCT USED FOR UNKNOWN INDICATION
     Dosage: UNK
     Route: 065
  2. ZOLPIDEM [Suspect]
     Active Substance: ZOLPIDEM TARTRATE
     Indication: PRODUCT USED FOR UNKNOWN INDICATION
     Dosage: 1.5 DOSAGEFORMSHE HAD INJECTED HERSELF JUST BELOW THE FOLD OF..
     Route: 013
  3. BUPRENORPHINE. [Concomitant]
     Active Substance: BUPRENORPHINE
     Indication: PRODUCT USED FOR UNKNOWN INDICATION
     Dosage: SHE HAD BEEN PRESCRIBED TAPERED DOSES OF BUPRENORPHINE
     Route: 065

REACTIONS (3)
  - Reaction to excipient [Recovered/Resolved]
  - Peripheral ischaemia [Recovered/Resolved]
  - Drug abuse [Recovered/Resolved]
